FAERS Safety Report 15478893 (Version 1)
Quarter: 2018Q4

REPORT INFORMATION
  Report Type: Report from Study
  Country: None (occurrence: ES)
  Receive Date: 20181009
  Receipt Date: 20181009
  Transmission Date: 20190205
  Serious: Yes (Other)
  Sender: FDA-Public Use
  Company Number: ES-ABBVIE-18S-144-2513866-00

PATIENT
  Age: 70 Year
  Sex: Male
  Weight: 65 kg

DRUGS (1)
  1. DUODOPA [Suspect]
     Active Substance: CARBIDOPA\LEVODOPA
     Indication: PARKINSON^S DISEASE
     Dosage: MD: 13 ML, CD: 2.9 ML ,ED: 2 ML
     Route: 050
     Dates: start: 20170420

REACTIONS (1)
  - Inguinal hernia [Not Recovered/Not Resolved]

NARRATIVE: CASE EVENT DATE: 201808
